FAERS Safety Report 9125469 (Version 1)
Quarter: 2013Q1

REPORT INFORMATION
  Report Type: Spontaneous
  Country: JP (occurrence: JP)
  Receive Date: 20130227
  Receipt Date: 20130227
  Transmission Date: 20140127
  Serious: Yes (Other)
  Sender: FDA-Public Use
  Company Number: JP-GLAXOSMITHKLINE-B0862700A

PATIENT
  Age: 82 Year
  Sex: Male

DRUGS (10)
  1. VALTREX [Suspect]
     Indication: HERPES ZOSTER
     Dosage: 500MG THREE TIMES PER DAY
     Route: 048
     Dates: start: 20130121, end: 20130121
  2. VALTREX [Suspect]
     Indication: HERPES ZOSTER
     Dosage: 1000MG THREE TIMES PER DAY
     Route: 048
     Dates: start: 20130122, end: 20130127
  3. SEROQUEL [Suspect]
     Indication: PRODUCT USED FOR UNKNOWN INDICATION
     Dosage: 75MG TWICE PER DAY
     Route: 048
  4. AMLODIPINE [Concomitant]
     Dosage: 5MG PER DAY
     Route: 048
  5. FAMOSTAGINE [Concomitant]
     Dosage: 20MG PER DAY
     Route: 048
  6. VESICARE [Concomitant]
     Dosage: 5MG PER DAY
     Route: 048
  7. CEROCRAL [Concomitant]
     Route: 048
  8. GASMOTIN [Concomitant]
     Dosage: 15MG THREE TIMES PER DAY
     Route: 048
  9. PURSENNID [Concomitant]
     Route: 048
  10. MAGNESIUM OXIDE [Concomitant]
     Route: 065

REACTIONS (8)
  - Altered state of consciousness [Recovering/Resolving]
  - Nervous system disorder [Recovering/Resolving]
  - Somnolence [Recovering/Resolving]
  - Fatigue [Unknown]
  - Condition aggravated [Unknown]
  - Feeling abnormal [Unknown]
  - Apathy [Unknown]
  - Incorrect dose administered [Unknown]
